FAERS Safety Report 6170247-5 (Version None)
Quarter: 2009Q2

REPORT INFORMATION
  Report Type: 
  Country: None (occurrence: None)
  Receive Date: 20090428
  Receipt Date: 20090416
  Transmission Date: 20091009
  Serious: Yes (Other)
  Sender: FDA-Public Use
  Company Number: JP-PFIZER INC-2009197576

PATIENT

DRUGS (2)
  1. HALCION [Suspect]
     Dosage: UNK
     Route: 048
  2. SILECE [Concomitant]
     Route: 048

REACTIONS (2)
  - BLINDNESS [None]
  - CONDITION AGGRAVATED [None]
